FAERS Safety Report 12078867 (Version 1)
Quarter: 2016Q1

REPORT INFORMATION
  Report Type: Report from Study
  Country: CZ (occurrence: CZ)
  Receive Date: 20160216
  Receipt Date: 20160216
  Transmission Date: 20160526
  Serious: Yes (Hospitalization)
  Sender: FDA-Public Use
  Company Number: PHHY2011CZ85086

PATIENT
  Age: 66 Year
  Sex: Female

DRUGS (2)
  1. AFINITOR [Suspect]
     Active Substance: EVEROLIMUS
     Dosage: 10 MG
     Route: 065
     Dates: start: 20110502, end: 20120823
  2. AFINITOR [Suspect]
     Active Substance: EVEROLIMUS
     Indication: METASTATIC RENAL CELL CARCINOMA
     Dosage: 10 MG
     Route: 065
     Dates: start: 20110313, end: 20110420

REACTIONS (4)
  - Cholecystitis [Unknown]
  - Cholelithiasis [Unknown]
  - Malignant neoplasm progression [Unknown]
  - Urinary tract infection [Unknown]

NARRATIVE: CASE EVENT DATE: 20110420
